FAERS Safety Report 4352439-0 (Version None)
Quarter: 2004Q2

REPORT INFORMATION
  Report Type: 
  Country: None (occurrence: None)
  Receive Date: 20040428
  Receipt Date: 20040415
  Transmission Date: 20050107
  Serious: Yes (Hospitalization)
  Sender: FDA-Public Use
  Company Number: 03P-062-0223912-00

PATIENT
  Age: 52 Year
  Sex: Female
  Weight: 66 kg

DRUGS (17)
  1. HUMIRA [Suspect]
     Indication: RHEUMATOID ARTHRITIS
     Dosage: 1 IN 2 WK, SUBCUTANEOUS
     Route: 058
     Dates: start: 20030318, end: 20030624
  2. MELOXICAM [Concomitant]
  3. DICLOFENAC RESINATE [Concomitant]
  4. PREDNISOLONE [Concomitant]
  5. EZETROL [Concomitant]
  6. LEVOTHYROXINE SODIUM [Concomitant]
  7. LEFLUNOMIDE [Concomitant]
  8. CELECOXIB [Concomitant]
  9. DICLOFENAC SODIUM [Concomitant]
  10. KLIOGEST ^NOVO INDUSTRI^ [Concomitant]
  11. FLUVASTATIN SODIUM [Concomitant]
  12. CARVEDILOL [Concomitant]
  13. AMLODIPINE BESYLATE [Concomitant]
  14. METHOTREXATE SODIUM [Concomitant]
  15. FOLSAURE [Concomitant]
  16. ESOMEPRAZOLE [Concomitant]
  17. ALLOPURINOL TAB [Concomitant]

REACTIONS (11)
  - DISSEMINATED TUBERCULOSIS [None]
  - ENDOMETRITIS [None]
  - HAEMOGLOBIN DECREASED [None]
  - MALIGNANT ASCITES [None]
  - MALIGNANT PLEURAL EFFUSION [None]
  - MEAN CELL VOLUME DECREASED [None]
  - MEAN PLATELET VOLUME DECREASED [None]
  - OVARIAN NEOPLASM [None]
  - PERITONEAL TUBERCULOSIS [None]
  - PLATELET COUNT INCREASED [None]
  - SALPINGITIS TUBERCULOUS [None]
